FAERS Safety Report 8300117-5 (Version None)
Quarter: 2012Q2

REPORT INFORMATION
  Report Type: 
  Country: None (occurrence: None)
  Receive Date: 20120420
  Receipt Date: 20120417
  Transmission Date: 20120825
  Serious: No
  Sender: FDA-Public Use
  Company Number: US-PFIZER INC-2012095402

PATIENT
  Sex: Female
  Weight: 76 kg

DRUGS (1)
  1. SPIRONOLACTONE [Suspect]
     Indication: BLOOD PRESSURE ABNORMAL
     Dosage: 25 MG, 2X/DAY
     Dates: start: 20100501, end: 20120416

REACTIONS (6)
  - DIARRHOEA [None]
  - FUNCTIONAL GASTROINTESTINAL DISORDER [None]
  - URINARY INCONTINENCE [None]
  - GASTROINTESTINAL DISORDER [None]
  - GASTRITIS [None]
  - NERVOUS SYSTEM DISORDER [None]
